FAERS Safety Report 21833649 (Version 1)
Quarter: 2023Q1

REPORT INFORMATION
  Report Type: Spontaneous
  Country: MX (occurrence: MX)
  Receive Date: 20230107
  Receipt Date: 20230107
  Transmission Date: 20230418
  Serious: Yes (Other)
  Sender: FDA-Public Use
  Company Number: MX-002147023-NVSC2023MX003320

PATIENT
  Age: 61 Year
  Sex: Male

DRUGS (2)
  1. PAZOPANIB [Suspect]
     Active Substance: PAZOPANIB
     Indication: Renal cancer metastatic
     Dosage: UNK
     Route: 065
  2. PAZOPANIB [Suspect]
     Active Substance: PAZOPANIB
     Indication: Metastases to lung

REACTIONS (2)
  - Central nervous system lupus [Unknown]
  - Hypertension [Unknown]
